FAERS Safety Report 16091611 (Version 1)
Quarter: 2019Q1

REPORT INFORMATION
  Report Type: Spontaneous
  Country: ES (occurrence: ES)
  Receive Date: 20190319
  Receipt Date: 20190319
  Transmission Date: 20190418
  Serious: Yes (Death, Other)
  Sender: FDA-Public Use
  Company Number: ES-BAYER-2019-022414

PATIENT
  Age: 67 Year

DRUGS (2)
  1. STIVARGA [Suspect]
     Active Substance: REGORAFENIB
     Indication: METASTASES TO PERITONEUM
  2. STIVARGA [Suspect]
     Active Substance: REGORAFENIB
     Indication: METASTASES TO LIVER
     Dosage: UNK
     Dates: start: 201401

REACTIONS (2)
  - Death [Fatal]
  - Metastases to lung [None]

NARRATIVE: CASE EVENT DATE: 201512
